FAERS Safety Report 14554208 (Version 1)
Quarter: 2018Q1

REPORT INFORMATION
  Report Type: Spontaneous
  Country: US (occurrence: US)
  Receive Date: 20180208
  Receipt Date: 20180208
  Transmission Date: 20180509
  Serious: Yes (Hospitalization)
  Sender: FDA-Public Use
  Company Number: None

PATIENT
  Age: 69 Year
  Sex: Male
  Weight: 91.4 kg

DRUGS (2)
  1. LEDIPASVIR/SOFOSBUVIR [Suspect]
     Active Substance: LEDIPASVIR\SOFOSBUVIR
     Indication: HEPATITIS C
     Route: 048
     Dates: start: 20150916, end: 20151021
  2. RIBAVIRIN. [Suspect]
     Active Substance: RIBAVIRIN
     Indication: HEPATITIS C
     Route: 048
     Dates: start: 20150916, end: 20151021

REACTIONS (10)
  - Concomitant disease aggravated [None]
  - Vomiting [None]
  - Jaundice [None]
  - Decreased appetite [None]
  - Alcohol use [None]
  - Haemolysis [None]
  - Nausea [None]
  - Hyperbilirubinaemia [None]
  - Weight decreased [None]
  - Pruritus [None]

NARRATIVE: CASE EVENT DATE: 20151021
